FAERS Safety Report 24596105 (Version 2)
Quarter: 2025Q4

REPORT INFORMATION
  Report Type: Spontaneous
  Country: US (occurrence: US)
  Receive Date: 20241110
  Receipt Date: 20251229
  Transmission Date: 20260119
  Serious: Yes (Life-Threatening, Other)
  Sender: JUBILANT
  Company Number: None

PATIENT
  Age: 49 Year
  Sex: Male

DRUGS (1)
  1. LEVOFLOXACIN [Suspect]
     Active Substance: LEVOFLOXACIN
     Indication: Product used for unknown indication
     Dosage: 500 MG, UNK

REACTIONS (1)
  - Eosinophilic pneumonia acute [Recovering/Resolving]
